FAERS Safety Report 23916919 (Version 7)
Quarter: 2024Q3

REPORT INFORMATION
  Report Type: Spontaneous
  Country: DE (occurrence: DE)
  Receive Date: 20240529
  Receipt Date: 20240819
  Transmission Date: 20241016
  Serious: Yes (Death, Hospitalization, Other)
  Sender: SANDOZ
  Company Number: DE-BRISTOL-MYERS SQUIBB COMPANY-2024-076097

PATIENT
  Age: 83 Year
  Sex: Male
  Weight: 71.2 kg

DRUGS (107)
  1. CARBOPLATIN [Suspect]
     Active Substance: CARBOPLATIN
     Indication: Non-small cell lung cancer
     Dosage: 234 MG, TIW
     Route: 042
     Dates: start: 20240318
  2. PACLITAXEL [Suspect]
     Active Substance: PACLITAXEL
     Indication: Non-small cell lung cancer
     Dosage: 234 MG
     Route: 042
     Dates: start: 20240318, end: 20240429
  3. OPDIVO [Suspect]
     Active Substance: NIVOLUMAB
     Indication: Non-small cell lung cancer
     Dosage: 360 MG, Q3W
     Route: 042
     Dates: start: 20240318
  4. YERVOY [Suspect]
     Active Substance: IPILIMUMAB
     Indication: Non-small cell lung cancer
     Dosage: 70 MG, ALL 6 WEEKS
     Route: 042
     Dates: start: 20240318, end: 20240318
  5. CANDESARTAN [Concomitant]
     Active Substance: CANDESARTAN
     Indication: Product used for unknown indication
     Dosage: UNK
     Route: 065
     Dates: start: 20240405
  6. CANDESARTAN [Concomitant]
     Active Substance: CANDESARTAN
     Dosage: UNK
     Route: 065
     Dates: end: 20240404
  7. DEXAMETHASONE [Concomitant]
     Active Substance: DEXAMETHASONE
     Indication: Prophylaxis
     Dosage: UNK
     Route: 065
     Dates: start: 20240318, end: 20240318
  8. DEXAMETHASONE [Concomitant]
     Active Substance: DEXAMETHASONE
     Dosage: UNK
     Route: 065
     Dates: start: 20240422, end: 20240422
  9. DEXAMETHASONE [Concomitant]
     Active Substance: DEXAMETHASONE
     Dosage: UNK
     Route: 065
     Dates: start: 20240429, end: 20240429
  10. DULOXETINE [Concomitant]
     Active Substance: DULOXETINE
     Indication: Product used for unknown indication
     Dosage: UNK
     Route: 065
  11. DULOXETINE [Concomitant]
     Active Substance: DULOXETINE
     Indication: Prophylaxis
  12. DULOXETINE [Concomitant]
     Active Substance: DULOXETINE
     Indication: Prophylaxis
  13. DUTASTERIDE\TAMSULOSIN HYDROCHLORIDE [Concomitant]
     Active Substance: DUTASTERIDE\TAMSULOSIN HYDROCHLORIDE
     Indication: Product used for unknown indication
     Dosage: UNK
     Route: 065
     Dates: start: 20240429
  14. DUTASTERIDE\TAMSULOSIN HYDROCHLORIDE [Concomitant]
     Active Substance: DUTASTERIDE\TAMSULOSIN HYDROCHLORIDE
     Dosage: UNK
     Route: 065
     Dates: start: 20240429
  15. DUTASTERIDE\TAMSULOSIN HYDROCHLORIDE [Concomitant]
     Active Substance: DUTASTERIDE\TAMSULOSIN HYDROCHLORIDE
     Dosage: UNK
     Route: 065
     Dates: start: 20240429
  16. DUTASTERIDE\TAMSULOSIN HYDROCHLORIDE [Concomitant]
     Active Substance: DUTASTERIDE\TAMSULOSIN HYDROCHLORIDE
     Dosage: UNK
     Route: 065
     Dates: start: 20240429
  17. DUTASTERIDE\TAMSULOSIN HYDROCHLORIDE [Concomitant]
     Active Substance: DUTASTERIDE\TAMSULOSIN HYDROCHLORIDE
     Dosage: UNK
     Route: 065
     Dates: start: 20240429
  18. DUTASTERIDE\TAMSULOSIN HYDROCHLORIDE [Concomitant]
     Active Substance: DUTASTERIDE\TAMSULOSIN HYDROCHLORIDE
     Dosage: UNK
     Route: 065
     Dates: start: 20240429
  19. DUTASTERIDE\TAMSULOSIN HYDROCHLORIDE [Concomitant]
     Active Substance: DUTASTERIDE\TAMSULOSIN HYDROCHLORIDE
     Dosage: UNK
     Route: 065
     Dates: start: 20240429
  20. DUTASTERIDE\TAMSULOSIN HYDROCHLORIDE [Concomitant]
     Active Substance: DUTASTERIDE\TAMSULOSIN HYDROCHLORIDE
     Dosage: UNK
     Route: 065
     Dates: start: 20240429
  21. DUTASTERIDE\TAMSULOSIN HYDROCHLORIDE [Concomitant]
     Active Substance: DUTASTERIDE\TAMSULOSIN HYDROCHLORIDE
     Route: 065
     Dates: start: 20240429
  22. DUTASTERIDE\TAMSULOSIN HYDROCHLORIDE [Concomitant]
     Active Substance: DUTASTERIDE\TAMSULOSIN HYDROCHLORIDE
     Route: 065
     Dates: start: 20240429
  23. DUTASTERIDE\TAMSULOSIN HYDROCHLORIDE [Concomitant]
     Active Substance: DUTASTERIDE\TAMSULOSIN HYDROCHLORIDE
     Route: 065
     Dates: start: 20240429
  24. DUTASTERIDE\TAMSULOSIN HYDROCHLORIDE [Concomitant]
     Active Substance: DUTASTERIDE\TAMSULOSIN HYDROCHLORIDE
     Route: 065
     Dates: start: 20240429
  25. DUTASTERIDE\TAMSULOSIN HYDROCHLORIDE [Concomitant]
     Active Substance: DUTASTERIDE\TAMSULOSIN HYDROCHLORIDE
     Route: 065
     Dates: start: 20240429
  26. DUTASTERIDE\TAMSULOSIN HYDROCHLORIDE [Concomitant]
     Active Substance: DUTASTERIDE\TAMSULOSIN HYDROCHLORIDE
     Route: 065
     Dates: start: 20240429
  27. DUTASTERIDE\TAMSULOSIN HYDROCHLORIDE [Concomitant]
     Active Substance: DUTASTERIDE\TAMSULOSIN HYDROCHLORIDE
     Route: 065
     Dates: start: 20240429
  28. DUTASTERIDE\TAMSULOSIN HYDROCHLORIDE [Concomitant]
     Active Substance: DUTASTERIDE\TAMSULOSIN HYDROCHLORIDE
     Route: 065
     Dates: start: 20240429
  29. DUTASTERIDE\TAMSULOSIN HYDROCHLORIDE [Concomitant]
     Active Substance: DUTASTERIDE\TAMSULOSIN HYDROCHLORIDE
     Route: 065
     Dates: start: 20240429
  30. ELIQUIS [Concomitant]
     Active Substance: APIXABAN
     Indication: Product used for unknown indication
     Dosage: UNK
     Route: 065
     Dates: start: 20240328, end: 20240328
  31. ELIQUIS [Concomitant]
     Active Substance: APIXABAN
     Dosage: UNK
     Route: 065
     Dates: end: 20240327
  32. ELIQUIS [Concomitant]
     Active Substance: APIXABAN
     Dosage: UNK
     Route: 065
     Dates: end: 20240327
  33. Erythrocytes, concentrated [Concomitant]
     Indication: Product used for unknown indication
     Dosage: UNK
     Route: 065
     Dates: start: 20240331, end: 20240331
  34. Erythrocytes, concentrated [Concomitant]
     Dosage: UNK
     Route: 065
     Dates: start: 20240331, end: 20240331
  35. Erythrocytes, concentrated [Concomitant]
     Dosage: UNK
     Route: 065
     Dates: start: 20240331, end: 20240331
  36. Erythrocytes, concentrated [Concomitant]
     Dosage: UNK
     Route: 065
     Dates: start: 20240331, end: 20240331
  37. Erythrocytes, concentrated [Concomitant]
     Dosage: UNK
     Route: 065
     Dates: start: 20240331, end: 20240331
  38. Erythrocytes, concentrated [Concomitant]
     Dosage: UNK
     Route: 065
     Dates: start: 20240331, end: 20240331
  39. Erythrocytes, concentrated [Concomitant]
     Dosage: UNK
     Route: 065
     Dates: start: 20240331, end: 20240331
  40. Erythrocytes, concentrated [Concomitant]
     Dosage: UNK
     Route: 065
     Dates: start: 20240331, end: 20240331
  41. Erythrocytes, concentrated [Concomitant]
     Dosage: UNK
     Route: 065
     Dates: start: 20240331, end: 20240331
  42. Erythrocytes, concentrated [Concomitant]
     Dosage: UNK
     Route: 065
     Dates: start: 20240331, end: 20240331
  43. Erythrocytes, concentrated [Concomitant]
     Dosage: UNK
     Route: 065
     Dates: start: 20240331, end: 20240331
  44. Erythrocytes, concentrated [Concomitant]
     Dosage: UNK
     Route: 065
     Dates: start: 20240331, end: 20240331
  45. Erythrocytes, concentrated [Concomitant]
     Dosage: UNK
     Route: 065
     Dates: start: 20240331, end: 20240331
  46. Erythrocytes, concentrated [Concomitant]
     Dosage: UNK
     Route: 065
     Dates: start: 20240331, end: 20240331
  47. Erythrocytes, concentrated [Concomitant]
     Dosage: UNK
     Route: 065
     Dates: start: 20240331, end: 20240331
  48. Erythrocytes, concentrated [Concomitant]
     Dosage: UNK
     Route: 065
     Dates: start: 20240514, end: 20240514
  49. Erythrocytes, concentrated [Concomitant]
     Dosage: UNK
     Route: 065
     Dates: start: 20240514, end: 20240514
  50. Erythrocytes, concentrated [Concomitant]
     Dosage: UNK
     Route: 065
     Dates: start: 20240514, end: 20240514
  51. Erythrocytes, concentrated [Concomitant]
     Dosage: UNK
     Route: 065
     Dates: start: 20240514, end: 20240514
  52. Erythrocytes, concentrated [Concomitant]
     Dosage: UNK
     Route: 065
     Dates: start: 20240514, end: 20240514
  53. Erythrocytes, concentrated [Concomitant]
     Dosage: UNK
     Route: 065
     Dates: start: 20240514, end: 20240514
  54. Erythrocytes, concentrated [Concomitant]
     Dosage: UNK
     Route: 065
     Dates: start: 20240514, end: 20240514
  55. Erythrocytes, concentrated [Concomitant]
     Dosage: UNK
     Route: 065
     Dates: start: 20240514, end: 20240514
  56. Erythrocytes, concentrated [Concomitant]
     Dosage: UNK
     Route: 065
     Dates: start: 20240514
  57. Erythrocytes, concentrated [Concomitant]
     Dosage: UNK
     Route: 065
     Dates: start: 20240514
  58. Erythrocytes, concentrated [Concomitant]
     Dosage: UNK
     Route: 065
     Dates: start: 20240514
  59. Erythrocytes, concentrated [Concomitant]
     Dosage: UNK
     Route: 065
     Dates: start: 20240514
  60. Erythrocytes, concentrated [Concomitant]
     Dosage: UNK
     Route: 065
     Dates: start: 20240514
  61. Erythrocytes, concentrated [Concomitant]
     Dosage: UNK
     Route: 065
     Dates: start: 20240520, end: 20240520
  62. Erythrocytes, concentrated [Concomitant]
     Dosage: UNK
     Route: 065
     Dates: start: 20240520, end: 20240520
  63. Erythrocytes, concentrated [Concomitant]
     Dosage: UNK
     Route: 065
     Dates: start: 20240520, end: 20240520
  64. Erythrocytes, concentrated [Concomitant]
     Dosage: UNK
     Route: 065
     Dates: start: 20240520, end: 20240520
  65. Erythrocytes, concentrated [Concomitant]
     Dosage: UNK
     Route: 065
     Dates: start: 20240520, end: 20240520
  66. Erythrocytes, concentrated [Concomitant]
     Dosage: UNK
     Route: 065
     Dates: start: 20240520, end: 20240520
  67. Erythrocytes, concentrated [Concomitant]
     Dosage: UNK
     Route: 065
     Dates: start: 20240520, end: 20240520
  68. Erythrocytes, concentrated [Concomitant]
     Dosage: UNK
     Route: 065
     Dates: start: 20240520, end: 20240520
  69. Erythrocytes, concentrated [Concomitant]
     Dosage: UNK
     Route: 065
     Dates: start: 20240520
  70. Erythrocytes, concentrated [Concomitant]
     Dosage: UNK
     Route: 065
     Dates: start: 20240520
  71. Erythrocytes, concentrated [Concomitant]
     Dosage: UNK
     Route: 065
     Dates: start: 20240520
  72. Erythrocytes, concentrated [Concomitant]
     Dosage: UNK
     Route: 065
     Dates: start: 20240520
  73. Erythrocytes, concentrated [Concomitant]
     Dosage: UNK
     Route: 065
     Dates: start: 20240520
  74. Erythrocytes, concentrated [Concomitant]
     Dosage: UNK
     Route: 065
  75. Erythrocytes, concentrated [Concomitant]
     Dosage: UNK
     Route: 065
  76. FERROUS GLYCINE SULFATE [Concomitant]
     Active Substance: FERROUS GLYCINE SULFATE
     Indication: Prophylaxis
     Dosage: UNK
     Route: 065
     Dates: end: 20240513
  77. FOSTER [Concomitant]
     Active Substance: BECLOMETHASONE\FORMOTEROL
     Indication: Product used for unknown indication
     Dosage: UNK
     Route: 065
  78. EZETIMIBE\SIMVASTATIN [Concomitant]
     Active Substance: EZETIMIBE\SIMVASTATIN
     Indication: Product used for unknown indication
     Dosage: UNK
     Route: 065
  79. Jonosteril [Concomitant]
     Indication: Product used for unknown indication
     Dosage: UNK
     Route: 065
     Dates: start: 20240329, end: 20240330
  80. Jonosteril [Concomitant]
     Dosage: UNK
     Route: 065
     Dates: start: 20240401, end: 20240401
  81. Jonosteril [Concomitant]
     Dosage: UNK
     Route: 065
     Dates: start: 20240401, end: 20240401
  82. LEVETIRACETAM [Concomitant]
     Active Substance: LEVETIRACETAM
     Indication: Product used for unknown indication
     Dosage: UNK
     Route: 065
     Dates: start: 20240328
  83. OMEPRAZOLE [Concomitant]
     Active Substance: OMEPRAZOLE
     Indication: Prophylaxis
     Dosage: UNK
     Route: 065
     Dates: start: 20240514
  84. OMEPRAZOLE [Concomitant]
     Active Substance: OMEPRAZOLE
     Dosage: UNK
     Route: 065
     Dates: end: 20240328
  85. OMEPRAZOLE [Concomitant]
     Active Substance: OMEPRAZOLE
     Dosage: UNK
     Route: 065
     Dates: end: 20240428
  86. ONDANSETRON [Concomitant]
     Active Substance: ONDANSETRON
     Indication: Prophylaxis
     Dosage: UNK
     Route: 065
     Dates: start: 20240318, end: 20240318
  87. ONDANSETRON [Concomitant]
     Active Substance: ONDANSETRON
     Dosage: UNK
     Route: 065
     Dates: start: 20240422, end: 20240422
  88. ONDANSETRON [Concomitant]
     Active Substance: ONDANSETRON
     Dosage: UNK
     Route: 065
     Dates: start: 20240429, end: 20240429
  89. Paracodin [Concomitant]
     Indication: Product used for unknown indication
     Dosage: UNK
     Route: 065
     Dates: start: 20240430
  90. PIPERACILLIN [Concomitant]
     Active Substance: PIPERACILLIN
     Indication: Product used for unknown indication
     Dosage: UNK
     Route: 065
     Dates: start: 20240513, end: 20240521
  91. PIPERACILLIN [Concomitant]
     Active Substance: PIPERACILLIN
     Dosage: UNK
     Route: 065
     Dates: start: 20240513, end: 20240521
  92. PIPERACILLIN [Concomitant]
     Active Substance: PIPERACILLIN
     Dosage: UNK
     Route: 065
     Dates: start: 20240513, end: 20240521
  93. PIPERACILLIN [Concomitant]
     Active Substance: PIPERACILLIN
     Dosage: UNK
     Route: 065
     Dates: start: 20240513, end: 20240521
  94. PIPERACILLIN [Concomitant]
     Active Substance: PIPERACILLIN
     Dosage: UNK
     Route: 065
     Dates: start: 20240513, end: 20240521
  95. PIPERACILLIN [Concomitant]
     Active Substance: PIPERACILLIN
     Dosage: UNK
     Route: 065
     Dates: start: 20240513, end: 20240521
  96. PIPERACILLIN [Concomitant]
     Active Substance: PIPERACILLIN
     Dosage: UNK
     Route: 065
     Dates: start: 20240513, end: 20240521
  97. PIPERACILLIN [Concomitant]
     Active Substance: PIPERACILLIN
     Dosage: UNK
     Route: 065
     Dates: start: 20240513, end: 20240521
  98. PIPERACILLIN [Concomitant]
     Active Substance: PIPERACILLIN
     Dosage: UNK
     Route: 065
     Dates: start: 20240513, end: 20240521
  99. PIPERACILLIN [Concomitant]
     Active Substance: PIPERACILLIN
     Dosage: UNK
     Route: 065
     Dates: start: 20240513, end: 20240521
  100. PIPERACILLIN [Concomitant]
     Active Substance: PIPERACILLIN
     Dosage: UNK
     Route: 065
     Dates: start: 20240513, end: 20240521
  101. PIPERACILLIN [Concomitant]
     Active Substance: PIPERACILLIN
     Dosage: UNK
     Route: 065
     Dates: start: 20240513, end: 20240521
  102. PIPERACILLIN [Concomitant]
     Active Substance: PIPERACILLIN
     Dosage: UNK
     Route: 065
     Dates: start: 20240513, end: 20240521
  103. TAMSULOSIN [Concomitant]
     Active Substance: TAMSULOSIN
     Indication: Product used for unknown indication
     Route: 065
     Dates: end: 20240328
  104. LEVOTHYROXINE SODIUM\POTASSIUM IODIDE [Concomitant]
     Active Substance: LEVOTHYROXINE SODIUM\POTASSIUM IODIDE
     Indication: Product used for unknown indication
     Dosage: UNK
     Route: 065
  105. TORSEMIDE [Concomitant]
     Active Substance: TORSEMIDE
     Indication: Product used for unknown indication
     Dosage: UNK
     Route: 065
     Dates: start: 20240331, end: 20240514
  106. TORSEMIDE [Concomitant]
     Active Substance: TORSEMIDE
     Dosage: UNK
     Route: 065
     Dates: end: 20240328
  107. TORSEMIDE [Concomitant]
     Active Substance: TORSEMIDE
     Dosage: UNK
     Route: 065
     Dates: end: 20240428

REACTIONS (6)
  - Pulmonary sepsis [Fatal]
  - Neutropenic sepsis [Recovering/Resolving]
  - Pneumonia [Recovering/Resolving]
  - Neutropenia [Recovered/Resolved]
  - Hypotonia [Recovering/Resolving]
  - Prescribed underdose [Unknown]

NARRATIVE: CASE EVENT DATE: 20240513
